FAERS Safety Report 5845823-7 (Version None)
Quarter: 2008Q3

REPORT INFORMATION
  Report Type: 
  Country: None (occurrence: None)
  Receive Date: 20080814
  Receipt Date: 20080806
  Transmission Date: 20090109
  Serious: Yes (Death, Other)
  Sender: FDA-Public Use
  Company Number: ES-GENENTECH-265875

PATIENT

DRUGS (10)
  1. MABTHERA [Suspect]
     Indication: BURKITT'S LYMPHOMA
     Dosage: 375 MG/M2, Q3W
     Route: 042
  2. PREDNISONE [Suspect]
     Indication: BURKITT'S LYMPHOMA
     Dosage: 60 MG/M2, UNK
     Route: 042
  3. CYCLOPHOSPHAMIDE [Suspect]
     Indication: BURKITT'S LYMPHOMA
     Dosage: 200 MG/M2, UNK
     Route: 042
  4. METHOTREXATE [Suspect]
     Indication: BURKITT'S LYMPHOMA
     Dosage: 1500 MG/M2, UNK
     Route: 042
  5. DEXAMETHASONE [Suspect]
     Indication: BURKITT'S LYMPHOMA
     Dosage: 10 MG/M2, UNK
     Route: 040
  6. VINCRISTINE [Suspect]
     Indication: BURKITT'S LYMPHOMA
     Dosage: 2 MG, UNK
     Route: 042
  7. CYCLOPHOSPHAMIDE [Suspect]
     Dosage: 200 MG, UNK
     Route: 043
  8. DOXORUBICIN HCL [Suspect]
     Indication: BURKITT'S LYMPHOMA
     Dosage: 25 MG/M2, UNK
     Route: 042
  9. ALLOPURINOL [Concomitant]
     Indication: DRUG USE FOR UNKNOWN INDICATION
  10. INTRAVENOUS SOLUTION NOS [Concomitant]
     Indication: DRUG USE FOR UNKNOWN INDICATION

REACTIONS (1)
  - DRUG TOXICITY [None]
